FAERS Safety Report 16894753 (Version 2)
Quarter: 2019Q4

REPORT INFORMATION
  Report Type: Spontaneous
  Country: US (occurrence: US)
  Receive Date: 20191008
  Receipt Date: 20191206
  Transmission Date: 20200122
  Serious: No
  Sender: FDA-Public Use
  Company Number: US-PFIZER INC-2019432244

PATIENT
  Age: 52 Year
  Sex: Female
  Weight: 67.59 kg

DRUGS (5)
  1. LYRICA [Suspect]
     Active Substance: PREGABALIN
     Dosage: 150 MG, UNK
  2. LYRICA [Suspect]
     Active Substance: PREGABALIN
     Indication: MUSCULOSKELETAL PAIN
     Dosage: 25 MG, 2X/DAY
  3. LYRICA [Suspect]
     Active Substance: PREGABALIN
     Indication: FIBROMYALGIA
     Dosage: 50 MG, 2X/DAY
  4. LYRICA [Suspect]
     Active Substance: PREGABALIN
     Dosage: 300 MG, UNK
  5. LYRICA [Suspect]
     Active Substance: PREGABALIN
     Dosage: (50MG IN THE MORNING AND 75MG IN THE AFTERNOON-ONE 50MG CAPSULE AND ONE 25 CAPSULE TO EQUAL 75MG)
     Route: 048
     Dates: start: 2018

REACTIONS (9)
  - Oedema peripheral [Unknown]
  - Burning sensation [Not Recovered/Not Resolved]
  - Increased tendency to bruise [Unknown]
  - Back pain [Unknown]
  - Pain in extremity [Unknown]
  - Fatigue [Unknown]
  - Peripheral swelling [Unknown]
  - Plantar fasciitis [Unknown]
  - Weight increased [Unknown]

NARRATIVE: CASE EVENT DATE: 201911
